FAERS Safety Report 6259556-9 (Version None)
Quarter: 2009Q3

REPORT INFORMATION
  Report Type: 
  Country: None (occurrence: None)
  Receive Date: 20090708
  Receipt Date: 20090626
  Transmission Date: 20100115
  Serious: Yes (Death)
  Sender: FDA-Public Use
  Company Number: US-PFIZER INC-2009200447

PATIENT
  Sex: Female
  Weight: 113.38 kg

DRUGS (10)
  1. GEODON [Suspect]
     Dosage: 40 MG, 1X/DAY
     Dates: start: 20081101
  2. ABILIFY [Suspect]
     Dosage: 5 MG
  3. TRAMADOL [Suspect]
  4. ZOLPIDEM [Suspect]
  5. FUROSEMIDE [Concomitant]
  6. POTASSIUM CHLORIDE [Concomitant]
  7. EFFEXOR XR [Concomitant]
     Dosage: 75 MG
  8. BUSPAR [Concomitant]
  9. FOLIC ACID [Concomitant]
  10. SUCRALFATE [Concomitant]

REACTIONS (2)
  - DYSPNOEA [None]
  - MYOCARDIAL INFARCTION [None]
